FAERS Safety Report 15157915 (Version 3)
Quarter: 2018Q3

REPORT INFORMATION
  Report Type: Spontaneous
  Country: DE (occurrence: DE)
  Receive Date: 20180718
  Receipt Date: 20180810
  Transmission Date: 20181010
  Serious: Yes (Life-Threatening, Hospitalization, Other)
  Sender: FDA-Public Use
  Company Number: DE-CONCORDIA PHARMACEUTICALS INC.-E2B_00013937

PATIENT
  Age: 32 Year
  Sex: Male

DRUGS (3)
  1. AZATHIOPRINE. [Suspect]
     Active Substance: AZATHIOPRINE
     Indication: CROHN^S DISEASE
     Dosage: DOSAGE FORM: UNSPECIFIED, OVER 3 MONTHS
     Route: 065
  2. PREDNISOLONE. [Suspect]
     Active Substance: PREDNISOLONE
     Indication: CROHN^S DISEASE
     Dosage: DOSAGE FORM: UNSPECIFIED, OVER 3 MONTHS
     Route: 065
  3. INFLIXIMAB, RECOMBINANT [Suspect]
     Active Substance: INFLIXIMAB
     Indication: CROHN^S DISEASE
     Dosage: DOSAGE FORM: LYOPHILIZED POWDER, 2 MONTHS
     Route: 042

REACTIONS (3)
  - Opportunistic infection [Recovered/Resolved]
  - Pulmonary nocardiosis [Recovered/Resolved]
  - Mycobacterium avium complex infection [Recovered/Resolved]
